FAERS Safety Report 5819583-X (Version None)
Quarter: 2008Q3

REPORT INFORMATION
  Report Type: 
  Country: None (occurrence: None)
  Receive Date: 20080717
  Receipt Date: 20080707
  Transmission Date: 20090109
  Serious: Yes (Hospitalization)
  Sender: FDA-Public Use
  Company Number: 002062

PATIENT
  Age: 52 Year
  Sex: Male

DRUGS (10)
  1. BUSULFEX [Suspect]
     Indication: STEM CELL TRANSPLANT
     Dosage: 36 MI
     Route: 042
     Dates: start: 20070520, end: 20070521
  2. FLUDARABINE PHOSPHATE [Concomitant]
  3. VALPROATE SODIUM [Concomitant]
  4. FLIGRASTIM (FILGRASTIM) [Concomitant]
  5. METHOTREXATE [Concomitant]
  6. TACROLIMUS [Concomitant]
  7. MYOPHENOLATE MOFETIL (MYCOPHENOLATE MOFETIL) [Concomitant]
  8. MICAFUNGIN SODIUM (MICAFUNGIN SODIUM) [Concomitant]
  9. GANCICLOVIR [Concomitant]
  10. ITRACONAZOLE [Concomitant]

REACTIONS (17)
  - ALANINE AMINOTRANSFERASE INCREASED [None]
  - ANOREXIA [None]
  - ASPARTATE AMINOTRANSFERASE INCREASED [None]
  - BLOOD LACTATE DEHYDROGENASE INCREASED [None]
  - BONE MARROW TRANSPLANT [None]
  - CATHETER SEPSIS [None]
  - CONVULSION [None]
  - CYSTITIS HAEMORRHAGIC [None]
  - DIARRHOEA [None]
  - HYPERBILIRUBINAEMIA [None]
  - HYPERPHOSPHATASAEMIA [None]
  - HYPOALBUMINAEMIA [None]
  - HYPOURICAEMIA [None]
  - MALAISE [None]
  - NAUSEA [None]
  - STOMATITIS [None]
  - VOMITING [None]
